FAERS Safety Report 5914528-6 (Version None)
Quarter: 2008Q4

REPORT INFORMATION
  Report Type: 
  Country: None (occurrence: None)
  Receive Date: 20081008
  Receipt Date: 20080923
  Transmission Date: 20090506
  Serious: Yes (Life-Threatening)
  Sender: FDA-Public Use
  Company Number: 8036897

PATIENT
  Age: 63 Year
  Sex: Male
  Weight: 50.2 kg

DRUGS (4)
  1. KEPPRA [Suspect]
     Indication: EPILEPSY
     Dates: start: 20070222
  2. CARBAMAZEPINE [Concomitant]
  3. LAMOTRIGINE [Concomitant]
  4. TRIMETHOPRIM [Concomitant]

REACTIONS (7)
  - ANOREXIA [None]
  - CONVULSION [None]
  - HYPOREFLEXIA [None]
  - LOWER RESPIRATORY TRACT INFECTION [None]
  - METASTASES TO LIVER [None]
  - SOMNOLENCE [None]
  - URINARY TRACT INFECTION [None]
